FAERS Safety Report 10206422 (Version 1)
Quarter: 2014Q2

REPORT INFORMATION
  Report Type: Spontaneous
  Country: US (occurrence: None)
  Receive Date: 20140527
  Receipt Date: 20140527
  Transmission Date: 20141212
  Serious: No
  Sender: FDA-Public Use
  Company Number: None

PATIENT
  Age: 56 Year
  Sex: Female

DRUGS (5)
  1. LEXAPRO [Suspect]
     Indication: DEPRESSION
     Dosage: ONE TABLET
     Route: 048
  2. XANAX [Concomitant]
  3. PROTONIX [Concomitant]
  4. AMBIEN [Concomitant]
  5. BRINTELLIX [Concomitant]

REACTIONS (1)
  - Drug ineffective [None]
